FAERS Safety Report 6764657-2 (Version None)
Quarter: 2010Q2

REPORT INFORMATION
  Report Type: 
  Country: None (occurrence: None)
  Receive Date: 20100609
  Receipt Date: 20100502
  Transmission Date: 20101027
  Serious: No
  Sender: FDA-Public Use
  Company Number: 2010010700

PATIENT
  Age: 3 Year
  Sex: Male
  Weight: 18.1439 kg

DRUGS (4)
  1. CHILDREN'S ZYRTEC ALLERGY [Suspect]
     Indication: HYPERSENSITIVITY
     Dosage: UNSPECIFIED, ORAL
     Route: 048
     Dates: start: 20100301, end: 20100301
  2. CHILDREN'S ZYRTEC ALLERGY [Suspect]
     Indication: HYPERSENSITIVITY
     Dosage: 1-2 TABLETS DAILY, ORAL
     Route: 048
     Dates: start: 20100301
  3. MONTELUKAST SODIUM [Suspect]
     Indication: HYPERSENSITIVITY
     Dosage: UNSPECIFIED - ONE TABLET DAILY, ORAL
     Route: 048
     Dates: start: 20100301
  4. IBUPROFEN [Suspect]
     Indication: PYREXIA
     Dosage: 1 TEASPOON EVERY 6 HOURS, ORAL
     Route: 048
     Dates: start: 20100319

REACTIONS (5)
  - EAR INFECTION [None]
  - HEADACHE [None]
  - PRODUCT QUALITY ISSUE [None]
  - PYREXIA [None]
  - STREPTOCOCCAL INFECTION [None]
